FAERS Safety Report 7091528-7 (Version None)
Quarter: 2010Q4

REPORT INFORMATION
  Report Type: 
  Country: None (occurrence: None)
  Receive Date: 20101109
  Receipt Date: 20101105
  Transmission Date: 20110411
  Serious: Yes (Other)
  Sender: FDA-Public Use
  Company Number: GB-PFIZER INC-2010133647

PATIENT
  Age: 17 Year
  Sex: Female
  Weight: 44 kg

DRUGS (1)
  1. DEPO-PROVERA [Suspect]
     Dosage: 1 DF, SINGLE
     Route: 030
     Dates: start: 20100906

REACTIONS (1)
  - DEPRESSED MOOD [None]
